FAERS Safety Report 4846282-3 (Version None)
Quarter: 2005Q4

REPORT INFORMATION
  Report Type: 
  Country: None (occurrence: None)
  Receive Date: 20051206
  Receipt Date: 20051201
  Transmission Date: 20060501
  Serious: Yes (Hospitalization)
  Sender: FDA-Public Use
  Company Number: US-ROCHE-427084

PATIENT

DRUGS (1)
  1. ROCALTROL [Suspect]
     Indication: DRUG USE FOR UNKNOWN INDICATION
     Route: 048
     Dates: start: 20030615

REACTIONS (2)
  - CONVULSION [None]
  - HYPERCALCAEMIA [None]
